FAERS Safety Report 9077790 (Version 1)
Quarter: 2013Q1

REPORT INFORMATION
  Report Type: Report from Study
  Country: US (occurrence: US)
  Receive Date: 20130130
  Receipt Date: 20130130
  Transmission Date: 20140127
  Serious: No
  Sender: FDA-Public Use
  Company Number: US-ABBOTT-12P-163-0967033-00

PATIENT
  Age: 48 Year
  Sex: Female

DRUGS (4)
  1. HUMIRA 40 MG/0.8 ML PEN [Suspect]
     Indication: SARCOIDOSIS
     Dosage: INITIAL DOSE
     Dates: start: 20120807
  2. WELLBUTRIN [Concomitant]
     Indication: DEPRESSION
  3. VALTREX [Concomitant]
     Indication: ANTIVIRAL PROPHYLAXIS
  4. MICROGESTIN [Concomitant]
     Indication: CONTRACEPTION

REACTIONS (1)
  - Burning sensation [Recovered/Resolved]
